FAERS Safety Report 25790015 (Version 1)
Quarter: 2025Q3

REPORT INFORMATION
  Report Type: Spontaneous
  Country: US (occurrence: US)
  Receive Date: 20250911
  Receipt Date: 20250911
  Transmission Date: 20251021
  Serious: Yes (Other)
  Sender: RECORDATI
  Company Number: US-ORPHANEU-2025006372

PATIENT
  Age: 47 Year
  Sex: Female

DRUGS (1)
  1. ISTURISA [Suspect]
     Active Substance: OSILODROSTAT PHOSPHATE
     Indication: Product used for unknown indication
     Dosage: 1 MG, BID

REACTIONS (11)
  - Seizure [Unknown]
  - Emotional disorder [Unknown]
  - Blood glucose fluctuation [Unknown]
  - Feeling abnormal [Unknown]
  - Dysstasia [Unknown]
  - Tremor [Unknown]
  - Anxiety [Unknown]
  - Arthralgia [Unknown]
  - Presyncope [Unknown]
  - Heart rate increased [Unknown]
  - Malaise [Unknown]

NARRATIVE: CASE EVENT DATE: 20250829
